FAERS Safety Report 5671670-5 (Version None)
Quarter: 2008Q2

REPORT INFORMATION
  Report Type: 
  Country: None (occurrence: None)
  Receive Date: 20080227
  Receipt Date: 20070713
  Transmission Date: 20081010
  Serious: Yes (Other)
  Sender: FDA-Public Use
  Company Number: CHPA2007US07735

PATIENT
  Age: 30 Year
  Sex: Female

DRUGS (1)
  1. TRANSDERM SCOP [Suspect]
     Indication: MOTION SICKNESS
     Dosage: 1.5 MG MG, ONCE/SINGLE, TRANSDERMAL
     Route: 062
     Dates: start: 20070421, end: 20070422

REACTIONS (2)
  - CONFUSIONAL STATE [None]
  - DISORIENTATION [None]
